FAERS Safety Report 17941317 (Version 1)
Quarter: 2020Q2

REPORT INFORMATION
  Report Type: Spontaneous
  Country: US (occurrence: US)
  Receive Date: 20200624
  Receipt Date: 20200624
  Transmission Date: 20200714
  Serious: No
  Sender: FDA-Public Use
  Company Number: None

PATIENT
  Age: 60 Year

DRUGS (1)
  1. BAHAMA BO OCEAN FRESH HAND SANITIZER [Suspect]
     Active Substance: ALCOHOL
     Indication: ANTIBIOTIC PROPHYLAXIS
     Route: 061
     Dates: start: 20200624, end: 20200624

REACTIONS (7)
  - Product odour abnormal [None]
  - Product label confusion [None]
  - Toxicity to various agents [None]
  - Dizziness [None]
  - Malaise [None]
  - Product physical issue [None]
  - Skin burning sensation [None]

NARRATIVE: CASE EVENT DATE: 20200624
